FAERS Safety Report 16978148 (Version 1)
Quarter: 2019Q4

REPORT INFORMATION
  Report Type: Spontaneous
  Country: US (occurrence: US)
  Receive Date: 20191031
  Receipt Date: 20191031
  Transmission Date: 20200122
  Serious: Yes (Other)
  Sender: FDA-Public Use
  Company Number: US-SAOL THERAPEUTICS-2019SAO00427

PATIENT
  Sex: Male

DRUGS (2)
  1. LIORESAL [Suspect]
     Active Substance: BACLOFEN
     Indication: MUSCLE SPASTICITY
     Dosage: ^THINKS IT^S 44^
     Route: 037
  2. LIORESAL [Suspect]
     Active Substance: BACLOFEN
     Indication: SPINAL CORD INJURY
     Dosage: UNK
     Route: 037

REACTIONS (6)
  - Unevaluable event [Unknown]
  - Cyst [Unknown]
  - Neuralgia [Unknown]
  - Muscle spasticity [Unknown]
  - Movement disorder [Unknown]
  - Therapeutic product effect incomplete [Unknown]
